FAERS Safety Report 15565862 (Version 1)
Quarter: 2018Q4

REPORT INFORMATION
  Report Type: Spontaneous
  Country: US (occurrence: US)
  Receive Date: 20181030
  Receipt Date: 20181030
  Transmission Date: 20190205
  Serious: Yes (Hospitalization)
  Sender: FDA-Public Use
  Company Number: None

PATIENT
  Sex: Male

DRUGS (10)
  1. FAMOTIDINE. [Concomitant]
     Active Substance: FAMOTIDINE
  2. ONDANSETRON [Concomitant]
     Active Substance: ONDANSETRON
  3. DIPHENHYDRAMINE HCL [Concomitant]
     Active Substance: DIPHENHYDRAMINE HYDROCHLORIDE
  4. DOCUSATE SODIUM +SENNA [Concomitant]
  5. IMATINB MESYLATE [Suspect]
     Active Substance: IMATINIB MESYLATE
     Indication: ACUTE LYMPHOCYTIC LEUKAEMIA
     Route: 048
  6. EPINEPHRINE. [Concomitant]
     Active Substance: EPINEPHRINE
  7. SODIUM BICARBONATE. [Concomitant]
     Active Substance: SODIUM BICARBONATE
  8. PREDNISONE. [Concomitant]
     Active Substance: PREDNISONE
  9. MUPIROCIN. [Concomitant]
     Active Substance: MUPIROCIN
  10. PROMETHAZINE HCL [Concomitant]
     Active Substance: PROMETHAZINE HYDROCHLORIDE

REACTIONS (1)
  - Pyrexia [None]
